FAERS Safety Report 16672828 (Version 1)
Quarter: 2019Q3

REPORT INFORMATION
  Report Type: Spontaneous
  Country: US (occurrence: US)
  Receive Date: 20190620
  Receipt Date: 20190620
  Transmission Date: 20191004
  Serious: Yes (Hospitalization, Disabling)
  Sender: FDA-Public Use
  Company Number: None

PATIENT
  Age: 65 Year
  Sex: Male

DRUGS (1)
  1. XELJANZ [Suspect]
     Active Substance: TOFACITINIB CITRATE
     Indication: RHEUMATOID ARTHRITIS
     Route: 048
     Dates: start: 20171230, end: 201906

REACTIONS (4)
  - Cerebrovascular accident [None]
  - Therapy cessation [None]
  - Wheelchair user [None]
  - Visual impairment [None]

NARRATIVE: CASE EVENT DATE: 20190209
